FAERS Safety Report 25808781 (Version 1)
Quarter: 2025Q3

REPORT INFORMATION
  Report Type: Report from Study
  Country: US (occurrence: US)
  Receive Date: 20250916
  Receipt Date: 20250916
  Transmission Date: 20251021
  Serious: Yes (Other)
  Sender: ALEXION PHARMACEUTICALS
  Company Number: 202509USA010611US

PATIENT
  Sex: Female

DRUGS (3)
  1. LYNPARZA [Suspect]
     Active Substance: OLAPARIB
     Indication: Breast cancer
     Dosage: 150 MILLIGRAM, BID
     Dates: start: 20250605
  2. LYNPARZA [Suspect]
     Active Substance: OLAPARIB
     Dosage: 300 MILLIGRAM, BID
     Dates: start: 20250611
  3. LYNPARZA [Suspect]
     Active Substance: OLAPARIB
     Dosage: 250 MILLIGRAM (ONE 150 MG PLUS ONE 100 MG TABLET), BID
     Dates: start: 202508

REACTIONS (4)
  - Full blood count decreased [Unknown]
  - Brain fog [Unknown]
  - Product dose omission issue [Unknown]
  - Underdose [Unknown]
